FAERS Safety Report 7384146-4 (Version None)
Quarter: 2011Q1

REPORT INFORMATION
  Report Type: 
  Country: None (occurrence: None)
  Receive Date: 20110330
  Receipt Date: 20110322
  Transmission Date: 20110831
  Serious: Yes (Death)
  Sender: FDA-Public Use
  Company Number: A0920561A

PATIENT
  Sex: Female

DRUGS (3)
  1. SERETIDE [Suspect]
     Dosage: 2PUFF PER DAY
     Route: 055
     Dates: start: 20101201, end: 20110101
  2. COMBIVENT [Concomitant]
  3. UNKNOWN MEDICATION [Concomitant]

REACTIONS (1)
  - PLEURAL EFFUSION [None]
